FAERS Safety Report 10253928 (Version 1)
Quarter: 2014Q2

REPORT INFORMATION
  Report Type: Report from Study
  Country: US (occurrence: US)
  Receive Date: 20140623
  Receipt Date: 20140623
  Transmission Date: 20141212
  Serious: Yes (Death)
  Sender: FDA-Public Use
  Company Number: US-BAXTER-2014BAX032460

PATIENT
  Sex: 0

DRUGS (1)
  1. GENTAMICIN, SULFATE_GENTAMICIN, SULFATE 2.00 MG/ML_SOLUTION FOR INFUSI [Suspect]
     Indication: ENTEROBACTER BACTERAEMIA
     Route: 065

REACTIONS (1)
  - Death [Fatal]
